FAERS Safety Report 6875638-2 (Version None)
Quarter: 2010Q3

REPORT INFORMATION
  Report Type: 
  Country: None (occurrence: None)
  Receive Date: 20100727
  Receipt Date: 20100716
  Transmission Date: 20110219
  Serious: Yes (Other)
  Sender: FDA-Public Use
  Company Number: TR-JNJFOC-20100700773

PATIENT
  Sex: Male
  Weight: 70 kg

DRUGS (2)
  1. DORIBAX [Suspect]
     Indication: URINARY TRACT INFECTION
     Route: 041
  2. AMIKACIN [Concomitant]
     Indication: URINARY TRACT INFECTION

REACTIONS (1)
  - BRADYCARDIA [None]
